FAERS Safety Report 17564256 (Version 1)
Quarter: 2020Q1

REPORT INFORMATION
  Report Type: Spontaneous
  Country: US (occurrence: US)
  Receive Date: 20200320
  Receipt Date: 20200320
  Transmission Date: 20200409
  Serious: Yes (Life-Threatening, Hospitalization)
  Sender: FDA-Public Use
  Company Number: US-MICRO LABS LIMITED-ML2020-00750

PATIENT
  Age: 18 Year
  Sex: Male

DRUGS (28)
  1. LEVETIRACETAM. [Suspect]
     Active Substance: LEVETIRACETAM
     Indication: SEIZURE
  2. PENTOBARBITAL INFUSION [Concomitant]
     Dosage: DECREASED
  3. LEVETIRACETAM. [Suspect]
     Active Substance: LEVETIRACETAM
     Indication: FATIGUE
  4. CLOBAZAM. [Suspect]
     Active Substance: CLOBAZAM
     Indication: SEIZURE
  5. VALPROIC ACID. [Suspect]
     Active Substance: VALPROIC ACID
     Indication: SEIZURE
  6. LORAZEPAM. [Suspect]
     Active Substance: LORAZEPAM
     Indication: SEIZURE
  7. FELBAMATE. [Suspect]
     Active Substance: FELBAMATE
     Indication: SEIZURE
  8. DOXYCYCLINE. [Concomitant]
     Active Substance: DOXYCYCLINE
     Indication: UNEVALUABLE THERAPY
  9. VASOPRESSIN INFUSION [Concomitant]
     Indication: SEIZURE
  10. LEVETIRACETAM. [Suspect]
     Active Substance: LEVETIRACETAM
     Indication: INFLUENZA LIKE ILLNESS
  11. CLOBAZAM. [Suspect]
     Active Substance: CLOBAZAM
     Indication: UNEVALUABLE EVENT
  12. OXCARBAZEPINE. [Suspect]
     Active Substance: OXCARBAZEPINE
     Indication: SEIZURE
  13. KETAMINE INFUSION IN NS - 5MG/ML [Suspect]
     Active Substance: KETAMINE
     Indication: ELECTROENCEPHALOGRAM ABNORMAL
  14. PENTOBARBITAL INFUSION [Concomitant]
     Indication: ELECTROENCEPHALOGRAM ABNORMAL
  15. RITUXIMAB. [Concomitant]
     Active Substance: RITUXIMAB
     Indication: SEIZURE
     Dosage: EVERY 2 WEEKS
  16. MIDAZOLAM INFUSION [Suspect]
     Active Substance: MIDAZOLAM HYDROCHLORIDE
     Indication: UNEVALUABLE THERAPY
     Dosage: UP-TITRATED TO 60 MG H-1
  17. INTRAVENOUS IMMUNOGLOBULIN [Suspect]
     Active Substance: HUMAN IMMUNOGLOBULIN G
     Indication: AUTOIMMUNE DISORDER
  18. METHYLPREDNISOLONE. [Suspect]
     Active Substance: METHYLPREDNISOLONE
     Indication: UNEVALUABLE THERAPY
  19. PHENOBARBITAL. [Suspect]
     Active Substance: PHENOBARBITAL
     Indication: ELECTROENCEPHALOGRAM ABNORMAL
  20. FOSPHENYTOIN [Concomitant]
     Active Substance: FOSPHENYTOIN
  21. ACYCLOVIR. [Concomitant]
     Active Substance: ACYCLOVIR
     Indication: ENCEPHALITIS
  22. CEFTRIAXONE. [Concomitant]
     Active Substance: CEFTRIAXONE
     Indication: ENCEPHALITIS
  23. VANCOMYCIN [Concomitant]
     Active Substance: VANCOMYCIN
     Indication: ENCEPHALITIS
  24. LACOSAMIDE. [Suspect]
     Active Substance: LACOSAMIDE
     Indication: SEIZURE
  25. TOPIRAMATE. [Suspect]
     Active Substance: TOPIRAMATE
     Indication: SEIZURE
  26. PROPOFOL INFUSION [Suspect]
     Active Substance: PROPOFOL
     Indication: ELECTROENCEPHALOGRAM ABNORMAL
     Dosage: 150MCG KG MIN -1
  27. PHENOBARBITAL. [Suspect]
     Active Substance: PHENOBARBITAL
     Route: 048
  28. PERAMPANEL [Concomitant]
     Active Substance: PERAMPANEL

REACTIONS (1)
  - Drug ineffective [Unknown]
